FAERS Safety Report 13647560 (Version 1)
Quarter: 2017Q2

REPORT INFORMATION
  Report Type: Spontaneous
  Country: CN (occurrence: CN)
  Receive Date: 20170613
  Receipt Date: 20170613
  Transmission Date: 20170830
  Serious: Yes (Other)
  Sender: FDA-Public Use
  Company Number: CN-ASTRAZENECA-2017SE61559

PATIENT
  Age: 26159 Day
  Sex: Female
  Weight: 85.5 kg

DRUGS (3)
  1. CLOPIDOGREL SULFATE [Concomitant]
     Active Substance: CLOPIDOGREL BISULFATE
     Indication: CEREBROVASCULAR DISORDER
     Route: 048
     Dates: start: 20161206, end: 20161226
  2. ATORVASTATIN CALCIUM. [Suspect]
     Active Substance: ATORVASTATIN CALCIUM
     Indication: STENOSIS
     Route: 048
     Dates: start: 20161216, end: 20161217
  3. ROSUVASTATIN CALCIUM. [Suspect]
     Active Substance: ROSUVASTATIN CALCIUM
     Indication: STENOSIS
     Route: 048
     Dates: start: 20161218, end: 20161219

REACTIONS (2)
  - Blood creatine phosphokinase MB increased [Recovered/Resolved]
  - Blood creatine phosphokinase increased [Recovered/Resolved]

NARRATIVE: CASE EVENT DATE: 20161219
